FAERS Safety Report 7335991-2 (Version None)
Quarter: 2011Q1

REPORT INFORMATION
  Report Type: 
  Country: None (occurrence: None)
  Receive Date: 20110307
  Receipt Date: 20110225
  Transmission Date: 20110831
  Serious: Yes (Hospitalization, Disabling)
  Sender: FDA-Public Use
  Company Number: BR-ASTRAZENECA-2011SE10916

PATIENT
  Age: 65 Year
  Sex: Female
  Weight: 81 kg

DRUGS (10)
  1. LOVAZA [Concomitant]
     Route: 048
  2. GLUCOSAMINE [Concomitant]
     Route: 048
  3. OMEPRAZOLE [Suspect]
     Indication: GASTROOESOPHAGEAL REFLUX DISEASE
     Route: 048
     Dates: start: 20080101, end: 20101201
  4. MOTILIUM [Concomitant]
     Indication: GASTRITIS
     Dates: start: 20080101
  5. ASA [Concomitant]
     Indication: CARDIAC DISORDER
     Dates: start: 20080901
  6. MOTILIUM [Concomitant]
     Indication: GASTROOESOPHAGEAL REFLUX DISEASE
     Dates: start: 20080101
  7. ATACAND [Suspect]
     Indication: HYPERTENSION
     Route: 048
     Dates: start: 20080901, end: 20110101
  8. OMEPRAZOLE [Suspect]
     Indication: GASTRITIS
     Route: 048
     Dates: start: 20080101, end: 20101201
  9. LEXAPRO [Concomitant]
     Indication: ANXIETY
     Route: 048
     Dates: start: 20101101
  10. ATACAND [Suspect]
     Route: 048
     Dates: start: 20110101

REACTIONS (11)
  - WEIGHT INCREASED [None]
  - CAROTID ARTERY OCCLUSION [None]
  - FALL [None]
  - ABDOMINAL PAIN UPPER [None]
  - ANAL HAEMORRHAGE [None]
  - DRUG INEFFECTIVE [None]
  - ANKLE FRACTURE [None]
  - PAIN IN EXTREMITY [None]
  - HYPERTENSION [None]
  - VERTIGO [None]
  - CONSTIPATION [None]
